FAERS Safety Report 4487090-5 (Version None)
Quarter: 2004Q4

REPORT INFORMATION
  Report Type: 
  Country: None (occurrence: None)
  Receive Date: 20041027
  Receipt Date: 20040820
  Transmission Date: 20050328
  Serious: Yes (Hospitalization)
  Sender: FDA-Public Use
  Company Number: JP-GLAXOSMITHKLINE-B0343437A

PATIENT
  Age: 93 Year
  Sex: Female
  Weight: 40 kg

DRUGS (8)
  1. TAGAMET [Suspect]
     Indication: GASTRIC ULCER
     Dosage: 200MG PER DAY
     Route: 048
     Dates: end: 20040815
  2. CETAPRIL [Suspect]
     Indication: HYPERTENSION
     Dosage: 25MG TWICE PER DAY
     Route: 048
     Dates: end: 20040815
  3. ISOSORBIDE MONONITRATE [Suspect]
     Indication: ANGINA PECTORIS
     Dosage: 20MG TWICE PER DAY
     Route: 048
     Dates: end: 20040815
  4. ZYLORIC [Suspect]
     Indication: HYPERURICAEMIA
     Dosage: 100MG TWICE PER DAY
     Route: 048
     Dates: start: 20040713, end: 20040815
  5. SOLDANA [Suspect]
     Indication: CONSTIPATION
     Dosage: 12MG PER DAY
     Route: 048
     Dates: end: 20040815
  6. LASIX [Suspect]
     Indication: HYPERTENSION
     Dosage: 40MG PER DAY
     Route: 048
     Dates: end: 20040815
  7. CERCINE [Suspect]
     Indication: INSOMNIA
     Route: 048
     Dates: end: 20040815
  8. OXYBUTYNIN HYDROCHLORIDE [Suspect]
     Indication: POLLAKIURIA
     Dosage: 2MG THREE TIMES PER DAY
     Route: 048
     Dates: end: 20040815

REACTIONS (3)
  - ERYTHEMA [None]
  - EYE DISCHARGE [None]
  - PRURITUS [None]
